FAERS Safety Report 16897213 (Version 3)
Quarter: 2019Q4

REPORT INFORMATION
  Report Type: Report from Study
  Country: US (occurrence: US)
  Receive Date: 20191009
  Receipt Date: 20191030
  Transmission Date: 20200122
  Serious: Yes (Other)
  Sender: FDA-Public Use
  Company Number: US-UCBSA-2019042640

PATIENT
  Age: 0 Year
  Sex: Female
  Weight: 3.1 kg

DRUGS (4)
  1. CERTOLIZUMAB PEGOL [Suspect]
     Active Substance: CERTOLIZUMAB PEGOL
     Indication: CROHN^S DISEASE
     Dosage: 400 MILLIGRAM, MONTHLY (QM)
     Route: 064
     Dates: start: 20190221, end: 20190716
  2. PRENATAL [ASCORBIC ACID;FERROUS FUMARATE;FOLIC ACID;RETINOL] [Concomitant]
     Indication: PREGNANCY
     Dosage: UNK
     Route: 064
     Dates: start: 2019
  3. CERTOLIZUMAB PEGOL [Suspect]
     Active Substance: CERTOLIZUMAB PEGOL
     Dosage: 400 MILLIGRAM, MONTHLY (QM)
     Route: 063
     Dates: start: 20190716
  4. BABY ASPIRIN [Concomitant]
     Active Substance: ASPIRIN
     Indication: THROMBOSIS
     Dosage: UNK
     Route: 064
     Dates: start: 20190221

REACTIONS (4)
  - Small for dates baby [Unknown]
  - Exposure via breast milk [Unknown]
  - Foetal growth restriction [Unknown]
  - Maternal exposure during pregnancy [Unknown]

NARRATIVE: CASE EVENT DATE: 2019
